FAERS Safety Report 9160465 (Version 1)
Quarter: 2013Q1

REPORT INFORMATION
  Report Type: Report from Study
  Country: CA (occurrence: AD)
  Receive Date: 20130313
  Receipt Date: 20130313
  Transmission Date: 20140127
  Serious: Yes (Other)
  Sender: FDA-Public Use
  Company Number: CA-JNJFOC-20130300642

PATIENT
  Sex: Male

DRUGS (1)
  1. REMICADE [Suspect]
     Indication: UVEITIS
     Dosage: DOSING FREQUENCY: EVERY 6 TO 8 WEEKS
     Route: 042

REACTIONS (1)
  - Melanocytic naevus [Unknown]
